FAERS Safety Report 9342187 (Version 1)
Quarter: 2013Q2

REPORT INFORMATION
  Report Type: Spontaneous
  Country: CN (occurrence: CN)
  Receive Date: 20130611
  Receipt Date: 20130611
  Transmission Date: 20140414
  Serious: Yes (Other)
  Sender: FDA-Public Use
  Company Number: CN-ASTRAZENECA-2013SE40210

PATIENT
  Age: 75 Year
  Sex: Male

DRUGS (2)
  1. BETALOC ZOK [Suspect]
     Indication: HYPERTENSION
     Route: 048
  2. BETALOC ZOK [Suspect]
     Indication: HYPERTENSION
     Route: 048

REACTIONS (2)
  - Atrioventricular block [Unknown]
  - Syncope [Unknown]
